FAERS Safety Report 25608784 (Version 1)
Quarter: 2025Q3

REPORT INFORMATION
  Report Type: Spontaneous
  Country: EU (occurrence: EU)
  Receive Date: 20250726
  Receipt Date: 20250726
  Transmission Date: 20251021
  Serious: Yes (Death, Hospitalization, Other)
  Sender: AUROBINDO
  Company Number: EU-MLMSERVICE-20241115-PI257847-00101-1

PATIENT
  Age: 50 Year
  Sex: Male
  Weight: 87.5 kg

DRUGS (13)
  1. GEMCITABINE [Suspect]
     Active Substance: GEMCITABINE
     Indication: Adenocarcinoma
     Dosage: 1000 MILLIGRAM/SQ. METER, ONCE A DAY, THREE?WEEKLY (GEMCITABINE 1,000 MG/M?  ON DAY 1 AND DAY 8 OF T
     Route: 065
     Dates: start: 2022, end: 2022
  2. GEMCITABINE [Suspect]
     Active Substance: GEMCITABINE
     Indication: Metastases to kidney
  3. GEMCITABINE [Suspect]
     Active Substance: GEMCITABINE
     Indication: Metastases to adrenals
  4. GEMCITABINE [Suspect]
     Active Substance: GEMCITABINE
     Indication: Metastases to muscle
  5. OXALIPLATIN [Suspect]
     Active Substance: OXALIPLATIN
     Indication: Malignant neoplasm of unknown primary site
     Route: 065
  6. BEVACIZUMAB [Suspect]
     Active Substance: BEVACIZUMAB
     Indication: Malignant neoplasm of unknown primary site
     Route: 065
  7. CISPLATIN [Suspect]
     Active Substance: CISPLATIN
     Indication: Malignant neoplasm of unknown primary site
     Dosage: 20 MILLIGRAM/SQ. METER, ONCE A DAY, THREE?WEEKLY (CISPLATIN 20 MG/M?,  ON DAY 1 AND DAY 8 OF THE TRE
     Route: 065
     Dates: start: 2022, end: 2022
  8. CISPLATIN [Suspect]
     Active Substance: CISPLATIN
     Indication: Metastases to kidney
  9. CISPLATIN [Suspect]
     Active Substance: CISPLATIN
     Indication: Metastases to adrenals
  10. CISPLATIN [Suspect]
     Active Substance: CISPLATIN
     Indication: Metastases to muscle
  11. LEUCOVORIN [Suspect]
     Active Substance: LEUCOVORIN\LEUCOVORIN CALCIUM
     Indication: Malignant neoplasm of unknown primary site
     Route: 065
  12. FLUOROURACIL [Suspect]
     Active Substance: FLUOROURACIL
     Indication: Malignant neoplasm of unknown primary site
     Route: 065
  13. FLUOROURACIL [Suspect]
     Active Substance: FLUOROURACIL
     Route: 065

REACTIONS (4)
  - Disease progression [Fatal]
  - Drug ineffective [Fatal]
  - Axillary vein thrombosis [Unknown]
  - Subclavian vein thrombosis [Unknown]

NARRATIVE: CASE EVENT DATE: 20220101
